FAERS Safety Report 6902421-1 (Version None)
Quarter: 2010Q3

REPORT INFORMATION
  Report Type: 
  Country: None (occurrence: None)
  Receive Date: 20100802
  Receipt Date: 20100802
  Transmission Date: 20110219
  Serious: Yes (Other)
  Sender: FDA-Public Use
  Company Number: None

PATIENT
  Age: 52 Year
  Sex: Female
  Weight: 66.6788 kg

DRUGS (5)
  1. REFRESH EYE DROPS [Suspect]
     Indication: DRY EYE
     Dosage: 1VIAL TOPICAL TO NAIL QD
     Route: 061
     Dates: start: 20100212, end: 20100728
  2. PROGESTERONE [Concomitant]
  3. PLANT STEROLS [Concomitant]
  4. FISH OIL [Concomitant]
  5. MULTI-VITAMIN [Concomitant]

REACTIONS (1)
  - BREAST CANCER [None]
